FAERS Safety Report 5780172-7 (Version None)
Quarter: 2008Q2

REPORT INFORMATION
  Report Type: 
  Country: None (occurrence: None)
  Receive Date: 20080620
  Receipt Date: 20080611
  Transmission Date: 20081010
  Serious: Yes (Other)
  Sender: FDA-Public Use
  Company Number: AU-ASTRAZENECA-2008AP04516

PATIENT
  Age: 59 Year
  Sex: Female

DRUGS (1)
  1. ARIMIDEX [Suspect]
     Indication: BREAST CANCER
     Route: 048
     Dates: start: 20070801

REACTIONS (4)
  - ARTHRALGIA [None]
  - CYSTITIS [None]
  - JOINT STIFFNESS [None]
  - TRIGGER FINGER [None]
